FAERS Safety Report 10033967 (Version 1)
Quarter: 2014Q1

REPORT INFORMATION
  Report Type: Spontaneous
  Country: US (occurrence: None)
  Receive Date: 20140324
  Receipt Date: 20140324
  Transmission Date: 20141002
  Serious: Yes (Other)
  Sender: FDA-Public Use
  Company Number: None

PATIENT
  Age: 62 Year
  Sex: Female
  Weight: 79.38 kg

DRUGS (1)
  1. AMOXICILLIN [Suspect]
     Indication: RESPIRATORY TRACT INFECTION
     Dosage: 1 CAP EVERY 8 HOURS. EVERY 8 HOURS. TAKEN BY MOUTH.
     Route: 048
     Dates: start: 20140317, end: 20140321

REACTIONS (2)
  - Drug ineffective [None]
  - Product quality issue [None]
